FAERS Safety Report 11073721 (Version 1)
Quarter: 2015Q2

REPORT INFORMATION
  Report Type: Report from Study
  Country: CA (occurrence: CA)
  Receive Date: 20150428
  Receipt Date: 20150428
  Transmission Date: 20150821
  Serious: Yes (Other)
  Sender: FDA-Public Use
  Company Number: PHHY2013CA018946

PATIENT
  Age: 54 Year
  Sex: Female

DRUGS (27)
  1. XOLAIR [Suspect]
     Active Substance: OMALIZUMAB
     Dosage: 375 MG, EVERY FOUR WEEKS
     Route: 058
     Dates: start: 20140513
  2. XOLAIR [Suspect]
     Active Substance: OMALIZUMAB
     Dosage: 375 MG, EVERY FOUR WEEKS
     Route: 058
     Dates: start: 20150127
  3. ALVESCO [Concomitant]
     Active Substance: CICLESONIDE
     Indication: PRODUCT USED FOR UNKNOWN INDICATION
     Dosage: 200 UG, QD
     Route: 065
  4. XOLAIR [Suspect]
     Active Substance: OMALIZUMAB
     Dosage: 375 MG, EVERY FOUR WEEKS
     Route: 058
     Dates: start: 201309
  5. XOLAIR [Suspect]
     Active Substance: OMALIZUMAB
     Dosage: 375 MG, EVERY FOUR WEEKS
     Route: 058
     Dates: start: 20150224, end: 20150324
  6. XOLAIR [Suspect]
     Active Substance: OMALIZUMAB
     Dosage: 375 MG, EVERY FOUR WEEKS
     Route: 058
     Dates: start: 20130723
  7. XOLAIR [Suspect]
     Active Substance: OMALIZUMAB
     Dosage: 375 MG, EVERY FOUR WEEKS
     Route: 058
     Dates: start: 20130903
  8. XOLAIR [Suspect]
     Active Substance: OMALIZUMAB
     Dosage: 375 MG, EVERY FOUR WEEKS
     Route: 058
     Dates: start: 20131001
  9. XOLAIR [Suspect]
     Active Substance: OMALIZUMAB
     Dosage: 375 MG, EVERY FOUR WEEKS
     Route: 058
     Dates: start: 20140610
  10. DIOVAN HCT [Suspect]
     Active Substance: HYDROCHLOROTHIAZIDE\VALSARTAN
     Indication: HYPERTENSION
     Dosage: 160/12.5 MG, UNK
     Route: 048
     Dates: start: 20150227
  11. PREDNISONE. [Concomitant]
     Active Substance: PREDNISONE
     Indication: ASTHMA
     Dosage: 25 MG,
     Route: 048
     Dates: start: 20130325
  12. XOLAIR [Suspect]
     Active Substance: OMALIZUMAB
     Dosage: 375 MG, EVERY FOUR WEEKS
     Route: 058
     Dates: start: 20130325
  13. XOLAIR [Suspect]
     Active Substance: OMALIZUMAB
     Dosage: 375 MG, EVERY FOUR WEEKS
     Route: 058
     Dates: start: 20131029
  14. VENTOLINE [Concomitant]
     Active Substance: ALBUTEROL
     Indication: PRODUCT USED FOR UNKNOWN INDICATION
     Dosage: UNK
     Route: 065
  15. PREDNISONE. [Concomitant]
     Active Substance: PREDNISONE
     Dosage: 20 MG
     Route: 065
  16. XOLAIR [Suspect]
     Active Substance: OMALIZUMAB
     Dosage: 375 MG, EVERY FOUR WEEKS
     Route: 058
     Dates: start: 20130311
  17. XOLAIR [Suspect]
     Active Substance: OMALIZUMAB
     Dosage: 375 MG, EVERY FOUR WEEKS
     Route: 058
     Dates: start: 20131112
  18. XOLAIR [Suspect]
     Active Substance: OMALIZUMAB
     Dosage: 375 MG, EVERY FOUR WEEKS
     Route: 058
     Dates: start: 20140318
  19. PREDNISONE. [Concomitant]
     Active Substance: PREDNISONE
     Dosage: ON AND OFF EVERY MONTH, FOR A COURSE OF 5-7 DAYS WAS ON AND OFF
     Route: 065
  20. SYMBICORT [Concomitant]
     Active Substance: BUDESONIDE\FORMOTEROL FUMARATE DIHYDRATE
     Indication: PRODUCT USED FOR UNKNOWN INDICATION
     Dosage: UNK
     Route: 065
  21. SYMBICORT [Concomitant]
     Active Substance: BUDESONIDE\FORMOTEROL FUMARATE DIHYDRATE
     Dosage: 1 DF, BID (400/12 UG)
     Route: 055
  22. PREDNISONE. [Concomitant]
     Active Substance: PREDNISONE
     Dosage: UNK (2 COURSES)
     Route: 065
  23. XOLAIR [Suspect]
     Active Substance: OMALIZUMAB
     Dosage: 375 MG, EVERY FOUR WEEKS
     Route: 058
     Dates: start: 20130820
  24. XOLAIR [Suspect]
     Active Substance: OMALIZUMAB
     Indication: ASTHMA
     Dosage: 375 MG, EVERY FOUR WEEKS
     Route: 058
     Dates: start: 20130211
  25. XOLAIR [Suspect]
     Active Substance: OMALIZUMAB
     Dosage: 375 MG, EVERY FOUR WEEKS
     Route: 058
     Dates: start: 20130408
  26. XOLAIR [Suspect]
     Active Substance: OMALIZUMAB
     Dosage: 375 MG, EVERY FOUR WEEKS
     Route: 058
     Dates: start: 20131210
  27. PREDNISONE. [Concomitant]
     Active Substance: PREDNISONE
     Dosage: 5 TO 10 MG DAILY
     Route: 065

REACTIONS (39)
  - Blood pressure increased [Not Recovered/Not Resolved]
  - Cough [Not Recovered/Not Resolved]
  - Chest pain [Unknown]
  - Hunger [Unknown]
  - Infection susceptibility increased [Unknown]
  - Bone pain [Unknown]
  - Pain in extremity [Unknown]
  - Nasopharyngitis [Unknown]
  - Injection site erythema [Unknown]
  - Injection site bruising [Unknown]
  - Non-cardiac chest pain [Unknown]
  - Drug ineffective [Unknown]
  - Pneumonia [Unknown]
  - Obstructive airways disorder [Unknown]
  - Dry throat [Unknown]
  - Hypersensitivity [Unknown]
  - Sleep disorder [Unknown]
  - Lower respiratory tract infection [Unknown]
  - Asthma [Unknown]
  - Breath sounds abnormal [Unknown]
  - Dysphonia [Unknown]
  - Nasal dryness [Unknown]
  - Eye pain [Unknown]
  - Ear congestion [Unknown]
  - Headache [Recovered/Resolved]
  - Fatigue [Recovered/Resolved]
  - Arthralgia [Not Recovered/Not Resolved]
  - Wheezing [Not Recovered/Not Resolved]
  - Apathy [Unknown]
  - Depression [Recovered/Resolved]
  - Dyspnoea [Unknown]
  - Ear discomfort [Unknown]
  - Pain [Unknown]
  - Musculoskeletal stiffness [Unknown]
  - Nasal congestion [Not Recovered/Not Resolved]
  - Chest discomfort [Unknown]
  - Weight increased [Unknown]
  - Dizziness [Recovered/Resolved]
  - Inflammation [Unknown]

NARRATIVE: CASE EVENT DATE: 2013
